FAERS Safety Report 12860922 (Version 1)
Quarter: 2016Q4

REPORT INFORMATION
  Report Type: Spontaneous
  Country: CN (occurrence: CN)
  Receive Date: 20161019
  Receipt Date: 20161019
  Transmission Date: 20170207
  Serious: Yes (Hospitalization, Other)
  Sender: FDA-Public Use
  Company Number: CN-NOVOPROD-513916

PATIENT
  Age: 75 Year
  Sex: Female
  Weight: 57 kg

DRUGS (7)
  1. ASPIRIN                            /00002701/ [Concomitant]
     Active Substance: ASPIRIN
     Indication: CORONARY ARTERY DISEASE
     Dosage: 0.1 G, QD
     Route: 048
     Dates: start: 20151206, end: 20151223
  2. LEVEMIR PENFILL [Suspect]
     Active Substance: INSULIN DETEMIR
     Indication: TYPE 2 DIABETES MELLITUS
     Dosage: 6 U, QD
     Route: 058
     Dates: start: 20151101, end: 20151220
  3. NOVONORM [Concomitant]
     Active Substance: REPAGLINIDE
     Indication: BLOOD GLUCOSE ABNORMAL
     Dosage: 1 MG, QD
     Route: 048
     Dates: start: 20151206, end: 20151223
  4. GASTRODIN [Concomitant]
     Indication: VERTIGO
     Dosage: 0.6 G, QD
     Route: 042
     Dates: start: 20151206, end: 20151223
  5. APROVEL [Concomitant]
     Active Substance: IRBESARTAN
     Indication: BLOOD PRESSURE ABNORMAL
     Dosage: 75 MG, QD
     Route: 048
     Dates: start: 20151206, end: 20151223
  6. NIMOTOP [Concomitant]
     Active Substance: NIMODIPINE
     Indication: CEREBROVASCULAR INSUFFICIENCY
     Dosage: 30 MG, TID
     Route: 048
     Dates: start: 20151206, end: 20151223
  7. KAI SHI [Concomitant]
     Indication: CARDIOVASCULAR INSUFFICIENCY
     Dosage: 10 MG, QD
     Route: 042
     Dates: start: 20151206, end: 20151223

REACTIONS (10)
  - Hypoaesthesia [Recovered/Resolved]
  - Chest discomfort [Recovered/Resolved]
  - Hypoaesthesia oral [Recovered/Resolved]
  - Nasopharyngitis [Recovered/Resolved]
  - Chills [Recovered/Resolved]
  - Hyperventilation [Recovered/Resolved]
  - Tremor [Recovered/Resolved]
  - Expired product administered [Unknown]
  - Dyspnoea [Recovered/Resolved]
  - Wheezing [Recovered/Resolved]

NARRATIVE: CASE EVENT DATE: 20151220
